FAERS Safety Report 4341694-9 (Version None)
Quarter: 2004Q2

REPORT INFORMATION
  Report Type: 
  Country: None (occurrence: None)
  Receive Date: 20040415
  Receipt Date: 20040329
  Transmission Date: 20050107
  Serious: Yes (Death)
  Sender: FDA-Public Use
  Company Number: EWC040338661

PATIENT
  Age: 56 Year
  Sex: Female

DRUGS (3)
  1. ZYPREXA [Suspect]
     Indication: MANIA
     Dosage: 20 MG
  2. ELTROXIN (LEVOTHYROXINE SODIUM) [Concomitant]
  3. LITHIUM CARBONATE [Concomitant]

REACTIONS (1)
  - MANIA [None]
